FAERS Safety Report 6523675-X (Version None)
Quarter: 2009Q4

REPORT INFORMATION
  Report Type: 
  Country: None (occurrence: None)
  Receive Date: 20091231
  Receipt Date: 20091218
  Transmission Date: 20100525
  Serious: Yes (Disabling)
  Sender: FDA-Public Use
  Company Number: US-ASTRAZENECA-2009SE27492

PATIENT
  Age: 46 Year
  Sex: Male

DRUGS (4)
  1. CRESTOR [Suspect]
     Indication: HYPERLIPIDAEMIA
     Route: 048
     Dates: end: 20091022
  2. CRESTOR [Suspect]
     Route: 048
     Dates: end: 20091022
  3. DIOVAN [Concomitant]
     Indication: HYPERTENSION
  4. NIACIN [Concomitant]
     Indication: DYSLIPIDAEMIA

REACTIONS (8)
  - FALL [None]
  - HEADACHE [None]
  - HYPOAESTHESIA [None]
  - LIMB DISCOMFORT [None]
  - MYALGIA [None]
  - OEDEMA PERIPHERAL [None]
  - PERIPHERAL COLDNESS [None]
  - WEIGHT INCREASED [None]
